FAERS Safety Report 21889423 (Version 1)
Quarter: 2023Q1

REPORT INFORMATION
  Report Type: Spontaneous
  Country: US (occurrence: US)
  Receive Date: 20230120
  Receipt Date: 20230120
  Transmission Date: 20230418
  Serious: No
  Sender: FDA-Public Use
  Company Number: US-002147023-NVSC2023US013027

PATIENT
  Sex: Female

DRUGS (2)
  1. MEKINIST [Suspect]
     Active Substance: TRAMETINIB DIMETHYL SULFOXIDE
     Indication: Peripheral nervous system neoplasm
     Dosage: 1 DOSAGE FORM, QD (DISSOLVE 1 TABLET IN 5 ML OF WATER AND GIVE 4 ML DAILY (DISCARD REMAINING 1 ML)
     Route: 048
     Dates: start: 202206
  2. MEKINIST [Suspect]
     Active Substance: TRAMETINIB DIMETHYL SULFOXIDE
     Indication: Nervous system neoplasm benign

REACTIONS (2)
  - Alopecia [Unknown]
  - Product use in unapproved indication [Unknown]
